FAERS Safety Report 6243305-4 (Version None)
Quarter: 2009Q2

REPORT INFORMATION
  Report Type: 
  Country: None (occurrence: None)
  Receive Date: 20090624
  Receipt Date: 20090616
  Transmission Date: 20091009
  Serious: Yes (Other)
  Sender: FDA-Public Use
  Company Number: PHEH2009US06338

PATIENT
  Sex: Female

DRUGS (4)
  1. ENABLEX [Suspect]
     Dosage: 7.5 MG, UNK
  2. VITAMINS [Concomitant]
  3. CALCIUM [Concomitant]
  4. PROBIOTICS (MICROORGANISMS W/PROBIOTIC ACTION) [Concomitant]

REACTIONS (2)
  - AMNESIA [None]
  - RASH [None]
